FAERS Safety Report 6212246-0 (Version None)
Quarter: 2009Q2

REPORT INFORMATION
  Report Type: 
  Country: None (occurrence: None)
  Receive Date: 20090529
  Receipt Date: 20090515
  Transmission Date: 20091009
  Serious: Yes (Hospitalization)
  Sender: FDA-Public Use
  Company Number: ALK_00860_2009

PATIENT
  Age: 23 Year
  Sex: Male
  Weight: 83.9154 kg

DRUGS (2)
  1. VIVITROL [Suspect]
     Indication: ALCOHOLISM
     Dosage: INTRAMUSCULAR
     Route: 030
     Dates: start: 20090331
  2. DILAUDID [Concomitant]

REACTIONS (2)
  - MONONUCLEOSIS SYNDROME [None]
  - SPLENIC INFARCTION [None]
